FAERS Safety Report 5563251-9 (Version None)
Quarter: 2007Q4

REPORT INFORMATION
  Report Type: 
  Country: None (occurrence: None)
  Receive Date: 20071211
  Receipt Date: 20071129
  Transmission Date: 20080405
  Serious: Yes (Other)
  Sender: FDA-Public Use
  Company Number: 2007BI025445

PATIENT
  Age: 35 Year
  Sex: Female

DRUGS (1)
  1. NATALIZUMA (NATALIZUMABH) [Suspect]
     Indication: MULTIPLE SCLEROSIS
     Dosage: 300 MG; QM; IV
     Route: 042
     Dates: start: 20070901

REACTIONS (4)
  - BURNING SENSATION MUCOSAL [None]
  - DYSPHAGIA [None]
  - SKIN BURNING SENSATION [None]
  - SKIN EXFOLIATION [None]
